FAERS Safety Report 6640720-1 (Version None)
Quarter: 2010Q1

REPORT INFORMATION
  Report Type: 
  Country: None (occurrence: None)
  Receive Date: 20100318
  Receipt Date: 20100305
  Transmission Date: 20100710
  Serious: Yes (Hospitalization)
  Sender: FDA-Public Use
  Company Number: US-ELI_LILLY_AND_COMPANY-US200910004055

PATIENT
  Sex: Male
  Weight: 102.49 kg

DRUGS (6)
  1. BYETTA [Suspect]
     Indication: DIABETES MELLITUS
     Dosage: 10 UG, 2/D
     Route: 058
     Dates: start: 20060619, end: 20090101
  2. TUMS [Concomitant]
  3. METFORMIN HYDROCHLORIDE [Concomitant]
     Indication: DIABETES MELLITUS
     Dosage: 2500 MG, DAILY (1/D)
  4. ACTOS [Concomitant]
  5. VYTORIN [Concomitant]
  6. FOSINOPRIL SODIUM [Concomitant]
     Indication: BLOOD PRESSURE
     Dates: start: 20060619

REACTIONS (3)
  - ADENOCARCINOMA PANCREAS [None]
  - JAUNDICE CHOLESTATIC [None]
  - OFF LABEL USE [None]
